FAERS Safety Report 9503895 (Version 1)
Quarter: 2013Q3

REPORT INFORMATION
  Report Type: Spontaneous
  Country: US (occurrence: None)
  Receive Date: 20130905
  Receipt Date: 20130905
  Transmission Date: 20140515
  Serious: Yes (Life-Threatening, Disabling, Other)
  Sender: FDA-Public Use
  Company Number: None

PATIENT
  Age: 29 Year
  Sex: Female
  Weight: 70.31 kg

DRUGS (1)
  1. MIRENA [Suspect]

REACTIONS (11)
  - Irritability [None]
  - Mood swings [None]
  - Feeling abnormal [None]
  - Weight decreased [None]
  - Asthenia [None]
  - Premenstrual syndrome [None]
  - Immune system disorder [None]
  - Viral infection [None]
  - Panic attack [None]
  - Hormone level abnormal [None]
  - Feeling abnormal [None]
